FAERS Safety Report 6579957-9 (Version None)
Quarter: 2010Q1

REPORT INFORMATION
  Report Type: 
  Country: None (occurrence: None)
  Receive Date: 20100212
  Receipt Date: 20100201
  Transmission Date: 20100710
  Serious: Yes (Hospitalization)
  Sender: FDA-Public Use
  Company Number: SE-PFIZER INC-2010012590

PATIENT
  Age: 84 Year
  Sex: Male

DRUGS (15)
  1. INSPRA [Suspect]
     Indication: CARDIAC FAILURE
     Dosage: 25 MG, DAILY
     Route: 048
     Dates: start: 20091201
  2. INSPRA [Suspect]
     Indication: OEDEMA DUE TO CARDIAC DISEASE
  3. ENALAPRIL MALEATE [Suspect]
     Indication: CARDIAC FAILURE
     Dosage: 10 MG, 1X/DAY
     Route: 048
  4. ENALAPRIL MALEATE [Suspect]
     Indication: OEDEMA DUE TO CARDIAC DISEASE
  5. SIMVASTATIN [Concomitant]
     Dosage: UNK
  6. NITROMEX [Concomitant]
     Dosage: 0.5 MG, UNK
     Route: 060
  7. FOLACIN [Concomitant]
     Dosage: 5 MG, UNK
  8. ACETAMINOPHEN [Concomitant]
     Dosage: 500 MG, UNK
  9. DUROFERON [Concomitant]
     Dosage: 100 MG, UNK
  10. FURIX [Concomitant]
     Dosage: 40 MG, UNK
     Route: 048
  11. BETOLVEX [Concomitant]
     Dosage: UNK
  12. BRICANYL [Concomitant]
     Dosage: UNK
  13. PROCREN [Concomitant]
     Dosage: UNK
  14. TROMBYL [Concomitant]
     Dosage: 160 MG, UNK
  15. EMCONCOR CHF [Concomitant]
     Dosage: 2.5 MG, UNK

REACTIONS (1)
  - RENAL FAILURE [None]
